FAERS Safety Report 24393107 (Version 1)
Quarter: 2024Q4

REPORT INFORMATION
  Report Type: Report from Study
  Country: BR (occurrence: BR)
  Receive Date: 20241003
  Receipt Date: 20241003
  Transmission Date: 20250115
  Serious: Yes (Life-Threatening, Hospitalization, Other)
  Sender: TAKEDA
  Company Number: BR-TAKEDA-2024TUS095828

PATIENT
  Sex: Male

DRUGS (1)
  1. HEMO-8R [Suspect]
     Active Substance: ANTIHEMOPHILIC FACTOR, HUMAN RECOMBINANT
     Indication: Factor VIII deficiency
     Dosage: 3500 INTERNATIONAL UNIT, 3/WEEK
     Route: 042
     Dates: start: 1994

REACTIONS (13)
  - Gastric ulcer haemorrhage [Recovered/Resolved with Sequelae]
  - Ulcer [Unknown]
  - Joint effusion [Recovered/Resolved with Sequelae]
  - Skin lesion [Recovered/Resolved with Sequelae]
  - Peripheral swelling [Unknown]
  - Joint swelling [Unknown]
  - Pain in extremity [Unknown]
  - Arthropathy [Unknown]
  - Skeletal injury [Unknown]
  - Gait disturbance [Unknown]
  - Movement disorder [Unknown]
  - Product dose omission issue [Unknown]
  - Arthralgia [Unknown]
